FAERS Safety Report 17600082 (Version 1)
Quarter: 2020Q1

REPORT INFORMATION
  Report Type: Spontaneous
  Country: CA (occurrence: CA)
  Receive Date: 20200330
  Receipt Date: 20200330
  Transmission Date: 20200409
  Serious: Yes (Other)
  Sender: FDA-Public Use
  Company Number: CA-VERTEX PHARMACEUTICALS-2020-006897

PATIENT
  Age: 44 Year

DRUGS (1)
  1. SYMDEKO [Suspect]
     Active Substance: IVACAFTOR\TEZACAFTOR
     Indication: CYSTIC FIBROSIS
     Dosage: NORMAL DOSE
     Route: 048
     Dates: start: 20200102

REACTIONS (1)
  - Vitreous detachment [Unknown]

NARRATIVE: CASE EVENT DATE: 2020
